FAERS Safety Report 12952886 (Version 1)
Quarter: 2016Q4

REPORT INFORMATION
  Report Type: Spontaneous
  Country: US (occurrence: US)
  Receive Date: 20161117
  Receipt Date: 20161117
  Transmission Date: 20170207
  Serious: Yes (Death, Hospitalization, Other)
  Sender: FDA-Public Use
  Company Number: US-TEVA-712568USA

PATIENT
  Age: 93 Year
  Sex: Male

DRUGS (1)
  1. BICALUTAMIDE. [Suspect]
     Active Substance: BICALUTAMIDE
     Indication: PROSTATE CANCER

REACTIONS (11)
  - Dementia Alzheimer^s type [Unknown]
  - Hallucination [Unknown]
  - Abnormal behaviour [Unknown]
  - Disorientation [Unknown]
  - Dyspnoea [Unknown]
  - Weight decreased [Unknown]
  - Delirium [Unknown]
  - Death [Fatal]
  - Tremor [Unknown]
  - Pneumonia aspiration [Unknown]
  - Nervousness [Unknown]

NARRATIVE: CASE EVENT DATE: 20160508
